FAERS Safety Report 16316107 (Version 1)
Quarter: 2019Q2

REPORT INFORMATION
  Report Type: Spontaneous
  Country: JP (occurrence: JP)
  Receive Date: 20190515
  Receipt Date: 20190515
  Transmission Date: 20190711
  Serious: Yes (Death)
  Sender: FDA-Public Use
  Company Number: JP-ELI_LILLY_AND_COMPANY-JP201905004884

PATIENT
  Age: 54 Year
  Sex: Female

DRUGS (10)
  1. SPIRONOLACTONE. [Concomitant]
     Active Substance: SPIRONOLACTONE
  2. TOLEDOMIN [Concomitant]
     Active Substance: MILNACIPRAN HYDROCHLORIDE
  3. TAKECAB [Concomitant]
     Active Substance: VONOPRAZAN FUMURATE
  4. FLUITRAN [Concomitant]
     Active Substance: TRICHLORMETHIAZIDE
  5. MEDROL [Concomitant]
     Active Substance: METHYLPREDNISOLONE
  6. BISOPROLOL [Concomitant]
     Active Substance: BISOPROLOL
  7. ADCIRCA [Suspect]
     Active Substance: TADALAFIL
     Indication: PRODUCT USED FOR UNKNOWN INDICATION
     Dosage: UNK
     Route: 048
     Dates: start: 20190404
  8. URSO [Concomitant]
     Active Substance: URSODIOL
  9. CELECOX [Concomitant]
     Active Substance: CELECOXIB
  10. TRAZENTA [Concomitant]
     Active Substance: LINAGLIPTIN

REACTIONS (1)
  - Hepatitis fulminant [Fatal]
